FAERS Safety Report 5411481-9 (Version None)
Quarter: 2007Q3

REPORT INFORMATION
  Report Type: 
  Country: None (occurrence: None)
  Receive Date: 20070810
  Receipt Date: 20070808
  Transmission Date: 20080115
  Serious: Yes (Death, Life-Threatening, Hospitalization)
  Sender: FDA-Public Use
  Company Number: FR-SHR-FR-2007-026051

PATIENT
  Age: 69 Year
  Sex: Male
  Weight: 79 kg

DRUGS (9)
  1. ULTRAVIST 300 [Suspect]
     Dosage: 120 ML, 1 DOSE
     Route: 042
     Dates: start: 20070621, end: 20070621
  2. HYPERIUM [Concomitant]
     Dosage: 1 TAB(S), 1X/DAY
     Route: 048
     Dates: start: 20040101, end: 20070621
  3. NEBIVOLOL HYDROCHLORIDE [Concomitant]
     Dosage: 1 TAB(S), 1X/DAY
     Route: 048
     Dates: start: 20040101, end: 20070621
  4. LOZOL [Concomitant]
     Dosage: 1 TAB(S), 1X/DAY
     Route: 048
     Dates: start: 20070401, end: 20070621
  5. ACETAMINOPHEN AND TRAMADOL HCL [Concomitant]
     Dosage: 1 TAB(S), 1X/DAY
     Route: 048
     Dates: start: 20070401, end: 20070621
  6. CORTANCYL [Concomitant]
     Dosage: 1 TAB(S), 1X/DAY
     Route: 048
     Dates: start: 20070615, end: 20070621
  7. CACIT D3 [Concomitant]
     Dosage: 1 G, 1X/DAY
     Route: 048
     Dates: start: 20070615, end: 20070621
  8. PLAVIX [Concomitant]
     Dosage: 1 TAB(S), 1X/DAY
     Route: 048
     Dates: start: 20050101, end: 20070621
  9. ZANIDIP [Concomitant]
     Dosage: 1 TAB(S), 1X/DAY
     Route: 048
     Dates: start: 20050101, end: 20070621

REACTIONS (8)
  - ANAPHYLACTIC SHOCK [None]
  - BRONCHOSPASM [None]
  - CARDIAC ARREST [None]
  - CHEST PAIN [None]
  - COMA [None]
  - CYANOSIS [None]
  - MALAISE [None]
  - MULTI-ORGAN FAILURE [None]
